FAERS Safety Report 6887970-7 (Version None)
Quarter: 2010Q3

REPORT INFORMATION
  Report Type: 
  Country: None (occurrence: None)
  Receive Date: 20100730
  Receipt Date: 20100722
  Transmission Date: 20110219
  Serious: Yes (Hospitalization)
  Sender: FDA-Public Use
  Company Number: A0866620A

PATIENT
  Age: 43 Year
  Sex: Female

DRUGS (2)
  1. TREXIMET [Suspect]
     Indication: MIGRAINE
     Route: 065
  2. ATENOLOL [Concomitant]
     Dosage: 50MG PER DAY
     Route: 048

REACTIONS (12)
  - AGITATION [None]
  - CARDIAC DISORDER [None]
  - CHEST DISCOMFORT [None]
  - CHEST PAIN [None]
  - DIZZINESS [None]
  - HEART RATE DECREASED [None]
  - HYPERHIDROSIS [None]
  - HYPERTENSION [None]
  - HYPOAESTHESIA [None]
  - NONSPECIFIC REACTION [None]
  - PALPITATIONS [None]
  - SINUS BRADYCARDIA [None]
